FAERS Safety Report 4523055-2 (Version None)
Quarter: 2004Q4

REPORT INFORMATION
  Report Type: 
  Country: None (occurrence: None)
  Receive Date: 20041208
  Receipt Date: 20041126
  Transmission Date: 20050328
  Serious: Yes (Life-Threatening, Hospitalization)
  Sender: FDA-Public Use
  Company Number: 2004239511DE

PATIENT
  Age: 66 Year
  Sex: Male
  Weight: 65 kg

DRUGS (4)
  1. CABERGOLINE [Suspect]
     Indication: OLIVOPONTOCEREBELLAR ATROPHY
     Dosage: 8 MG ORAL
     Route: 048
     Dates: start: 20030101
  2. CARBAMAZEPINE [Concomitant]
  3. SINEMET [Concomitant]
  4. DONEPEZIL HCL [Concomitant]

REACTIONS (1)
  - PULMONARY OEDEMA [None]
